FAERS Safety Report 7713986-4 (Version None)
Quarter: 2011Q3

REPORT INFORMATION
  Report Type: 
  Country: None (occurrence: None)
  Receive Date: 20110826
  Receipt Date: 20110818
  Transmission Date: 20111222
  Serious: Yes (Hospitalization)
  Sender: FDA-Public Use
  Company Number: JP-MERCK-1108USA02838

PATIENT
  Age: 10 Year
  Sex: Female

DRUGS (2)
  1. LIMETHASON [Suspect]
     Route: 042
     Dates: start: 20110722
  2. PEPCID RPD [Suspect]
     Route: 048
     Dates: start: 20110710, end: 20110810

REACTIONS (1)
  - LIVER DISORDER [None]
